FAERS Safety Report 24700761 (Version 1)
Quarter: 2024Q4

REPORT INFORMATION
  Report Type: Spontaneous
  Country: BG (occurrence: BG)
  Receive Date: 20241205
  Receipt Date: 20241205
  Transmission Date: 20250114
  Serious: Yes (Hospitalization, Other)
  Sender: SANDOZ
  Company Number: BG-009507513-2411BGR009708

PATIENT
  Age: 41 Year
  Sex: Female

DRUGS (4)
  1. BEVACIZUMAB [Suspect]
     Active Substance: BEVACIZUMAB
     Indication: Cervix cancer metastatic
     Dosage: UNK
     Route: 065
     Dates: start: 20230403
  2. CARBOPLATIN [Suspect]
     Active Substance: CARBOPLATIN
     Indication: Cervix cancer metastatic
     Dosage: UNK
     Route: 065
     Dates: start: 20230403
  3. PACLITAXEL [Suspect]
     Active Substance: PACLITAXEL
     Indication: Cervix cancer metastatic
     Dosage: UNK
     Route: 065
     Dates: start: 20230403
  4. PEMBROLIZUMAB [Suspect]
     Active Substance: PEMBROLIZUMAB
     Indication: Cervix cancer metastatic
     Dosage: UNK
     Route: 065
     Dates: start: 20230403

REACTIONS (8)
  - Immune-mediated lung disease [Unknown]
  - General physical health deterioration [Unknown]
  - Immune-mediated hepatitis [Unknown]
  - Pneumonia [Unknown]
  - Candida test positive [Unknown]
  - Blood glucose increased [Unknown]
  - Pleural effusion [Unknown]
  - Therapy partial responder [Unknown]

NARRATIVE: CASE EVENT DATE: 20230101
